FAERS Safety Report 6673383-X (Version None)
Quarter: 2010Q2

REPORT INFORMATION
  Report Type: 
  Country: None (occurrence: None)
  Receive Date: 20100408
  Receipt Date: 20100329
  Transmission Date: 20101027
  Serious: No
  Sender: FDA-Public Use
  Company Number: PHHY2010JP16397

PATIENT
  Sex: Male
  Weight: 68 kg

DRUGS (2)
  1. TEGRETOL [Suspect]
     Indication: NEURALGIA
     Dosage: 600 MG PER DAY
  2. VOLTAREN [Suspect]
     Indication: NEURALGIA
     Dosage: 75 MG PER DAY

REACTIONS (4)
  - DRUG ERUPTION [None]
  - DRUG INEFFECTIVE [None]
  - HYPOPHAGIA [None]
  - PAIN [None]
